FAERS Safety Report 9001666 (Version 1)
Quarter: 2013Q1

REPORT INFORMATION
  Report Type: Spontaneous
  Country: JP (occurrence: JP)
  Receive Date: 20130107
  Receipt Date: 20130107
  Transmission Date: 20140127
  Serious: Yes (Death, Other)
  Sender: FDA-Public Use
  Company Number: JP-GILEAD-2013-0067282

PATIENT
  Age: 39 Year
  Sex: Male

DRUGS (15)
  1. VISTIDE [Suspect]
     Indication: BK VIRUS INFECTION
     Dosage: 5 MG/KG, ONCE
  2. VISTIDE [Suspect]
     Indication: CYSTITIS HAEMORRHAGIC
  3. BUSULFAN [Concomitant]
     Indication: UNEVALUABLE EVENT
     Dosage: 3.2 MG/KG, QD
     Route: 042
  4. FLUDARABINE [Concomitant]
     Indication: UNEVALUABLE EVENT
     Dosage: 30 MG/M2, QD
     Route: 042
  5. CYCLOSPORINE [Concomitant]
     Indication: PROPHYLAXIS AGAINST GRAFT VERSUS HOST DISEASE
  6. METHOTREXATE [Concomitant]
     Indication: PROPHYLAXIS AGAINST GRAFT VERSUS HOST DISEASE
  7. ACYCLOVIR                          /00587301/ [Concomitant]
     Indication: INFECTION PROPHYLAXIS
     Route: 048
  8. FLUCONAZOLE [Concomitant]
     Indication: INFECTION PROPHYLAXIS
     Route: 048
  9. IMMUNOGLOBULIN                     /00025201/ [Concomitant]
     Indication: INFECTION PROPHYLAXIS
     Dosage: 500 MG/KG, Q1WK
     Route: 042
  10. VIDARABINE [Concomitant]
     Indication: CYSTITIS HAEMORRHAGIC
     Dosage: 5 MG/KG, QD
     Route: 042
  11. VIDARABINE [Concomitant]
     Indication: ADENOVIRUS INFECTION
     Dosage: 5 MG/KG, QD
  12. METHYLPREDNISOLONE [Concomitant]
     Indication: GRAFT VERSUS HOST DISEASE
     Dosage: 1 MG/KG, QD
  13. CIPROFLOXACIN [Concomitant]
     Indication: CYSTITIS HAEMORRHAGIC
     Dosage: UNK
  14. CIPROFLOXACIN [Concomitant]
     Indication: BK VIRUS INFECTION
  15. GRANULOCYTE COLONY-STIMULATING FACTOR [Concomitant]
     Indication: COLONY STIMULATING FACTOR THERAPY

REACTIONS (2)
  - Drug ineffective for unapproved indication [Fatal]
  - Renal impairment [Unknown]
